FAERS Safety Report 22037133 (Version 2)
Quarter: 2024Q1

REPORT INFORMATION
  Report Type: Report from Study
  Country: US (occurrence: US)
  Receive Date: 20230226
  Receipt Date: 20240104
  Transmission Date: 20240410
  Serious: Yes (Hospitalization, Other)
  Sender: FDA-Public Use
  Company Number: US-UCBSA-2023009343

PATIENT
  Age: 18 Year
  Sex: Male

DRUGS (1)
  1. FINTEPLA [Suspect]
     Active Substance: FENFLURAMINE
     Indication: Product used for unknown indication
     Dosage: 3.5 MILLILITER, 2X/DAY (BID)
     Route: 048
     Dates: start: 20210625, end: 2023

REACTIONS (5)
  - Seizure [Recovered/Resolved]
  - Psychomotor hyperactivity [Recovered/Resolved]
  - Agitation [Recovered/Resolved]
  - Aggression [Recovering/Resolving]
  - Insomnia [Unknown]

NARRATIVE: CASE EVENT DATE: 20210626
